FAERS Safety Report 14416090 (Version 50)
Quarter: 2022Q1

REPORT INFORMATION
  Report Type: Other
  Country: CA (occurrence: CA)
  Receive Date: 20180122
  Receipt Date: 20220301
  Transmission Date: 20220423
  Serious: Yes (Hospitalization, Other)
  Sender: FDA-Public Use
  Company Number: CA-002147023-PHHY2018CA005319

PATIENT
  Age: 65 Year
  Sex: Female

DRUGS (56)
  1. XOLAIR [Suspect]
     Active Substance: OMALIZUMAB
     Indication: Asthma
     Route: 058
     Dates: start: 20171130
  2. XOLAIR [Suspect]
     Active Substance: OMALIZUMAB
     Route: 058
     Dates: start: 20171228
  3. XOLAIR [Suspect]
     Active Substance: OMALIZUMAB
     Route: 058
     Dates: start: 20180125
  4. XOLAIR [Suspect]
     Active Substance: OMALIZUMAB
     Route: 058
     Dates: start: 201801
  5. XOLAIR [Suspect]
     Active Substance: OMALIZUMAB
     Route: 058
     Dates: start: 20180419
  6. XOLAIR [Suspect]
     Active Substance: OMALIZUMAB
     Route: 058
     Dates: start: 20180517
  7. XOLAIR [Suspect]
     Active Substance: OMALIZUMAB
     Route: 058
     Dates: start: 20180601
  8. XOLAIR [Suspect]
     Active Substance: OMALIZUMAB
     Route: 058
     Dates: start: 20180614
  9. XOLAIR [Suspect]
     Active Substance: OMALIZUMAB
     Route: 058
     Dates: start: 20180629
  10. XOLAIR [Suspect]
     Active Substance: OMALIZUMAB
     Route: 058
     Dates: start: 20180712
  11. XOLAIR [Suspect]
     Active Substance: OMALIZUMAB
     Route: 058
     Dates: start: 20181129
  12. XOLAIR [Suspect]
     Active Substance: OMALIZUMAB
     Route: 058
     Dates: start: 20181228
  13. XOLAIR [Suspect]
     Active Substance: OMALIZUMAB
     Route: 058
     Dates: start: 20190430
  14. XOLAIR [Suspect]
     Active Substance: OMALIZUMAB
     Route: 058
     Dates: start: 20190514
  15. XOLAIR [Suspect]
     Active Substance: OMALIZUMAB
     Route: 058
     Dates: start: 20190709
  16. XOLAIR [Suspect]
     Active Substance: OMALIZUMAB
     Route: 058
     Dates: start: 20190723
  17. XOLAIR [Suspect]
     Active Substance: OMALIZUMAB
     Route: 058
     Dates: start: 20191015
  18. XOLAIR [Suspect]
     Active Substance: OMALIZUMAB
     Route: 058
     Dates: start: 2020
  19. XOLAIR [Suspect]
     Active Substance: OMALIZUMAB
     Route: 058
     Dates: start: 20200303
  20. XOLAIR [Suspect]
     Active Substance: OMALIZUMAB
     Route: 058
     Dates: start: 20200512
  21. XOLAIR [Suspect]
     Active Substance: OMALIZUMAB
     Route: 058
  22. XOLAIR [Suspect]
     Active Substance: OMALIZUMAB
     Route: 058
  23. XOLAIR [Suspect]
     Active Substance: OMALIZUMAB
     Route: 058
     Dates: start: 20171201
  24. XOLAIR [Suspect]
     Active Substance: OMALIZUMAB
     Route: 058
  25. XOLAIR [Suspect]
     Active Substance: OMALIZUMAB
     Route: 058
  26. XOLAIR [Suspect]
     Active Substance: OMALIZUMAB
     Route: 058
     Dates: start: 20171101
  27. XOLAIR [Suspect]
     Active Substance: OMALIZUMAB
     Route: 058
     Dates: start: 20210122
  28. XOLAIR [Suspect]
     Active Substance: OMALIZUMAB
     Route: 058
  29. XOLAIR [Suspect]
     Active Substance: OMALIZUMAB
     Route: 058
  30. XOLAIR [Suspect]
     Active Substance: OMALIZUMAB
     Route: 058
  31. XOLAIR [Suspect]
     Active Substance: OMALIZUMAB
     Route: 058
  32. XOLAIR [Suspect]
     Active Substance: OMALIZUMAB
     Route: 058
  33. MEPERIDINE HYDROCHLORIDE [Suspect]
     Active Substance: MEPERIDINE HYDROCHLORIDE
     Indication: Product used for unknown indication
     Route: 065
  34. ZINC [Suspect]
     Active Substance: ZINC
     Indication: Product used for unknown indication
     Dosage: UNK
     Route: 065
  35. ASPIRIN [Suspect]
     Active Substance: ASPIRIN
     Indication: Product used for unknown indication
     Route: 065
  36. PREDNISONE [Suspect]
     Active Substance: PREDNISONE
     Indication: Asthma
     Route: 048
     Dates: start: 2013
  37. PREDNISONE [Suspect]
     Active Substance: PREDNISONE
     Indication: Polymyalgia rheumatica
     Route: 048
     Dates: start: 20180111
  38. PREDNISONE [Suspect]
     Active Substance: PREDNISONE
     Route: 048
     Dates: start: 20200316
  39. PREDNISONE [Suspect]
     Active Substance: PREDNISONE
     Route: 048
     Dates: start: 20200623
  40. PREDNISONE [Suspect]
     Active Substance: PREDNISONE
     Route: 065
     Dates: start: 20210220
  41. THEOPHYLLINE [Suspect]
     Active Substance: THEOPHYLLINE
     Indication: Product used for unknown indication
     Route: 065
  42. IODINE [Suspect]
     Active Substance: IODINE
     Indication: Product used for unknown indication
     Route: 065
  43. METFORMIN [Concomitant]
     Active Substance: METFORMIN HYDROCHLORIDE
  44. ATORVASTATIN [Concomitant]
     Active Substance: ATORVASTATIN
     Route: 065
  45. DILTIAZEM [Concomitant]
     Active Substance: DILTIAZEM
     Indication: Product used for unknown indication
     Route: 048
  46. CLONAZEPAM [Concomitant]
     Active Substance: CLONAZEPAM
     Indication: Product used for unknown indication
     Dosage: 1 DF, TID
     Route: 065
  47. ALENDRONATE [Concomitant]
     Active Substance: ALENDRONATE SODIUM
     Indication: Product used for unknown indication
     Route: 048
  48. VENTOLIN [Concomitant]
     Active Substance: ALBUTEROL SULFATE
     Indication: Asthma
     Dosage: 4 DF, UNK
     Route: 055
     Dates: start: 2010
  49. ACLIDINIUM BROMIDE [Concomitant]
     Active Substance: ACLIDINIUM BROMIDE
     Indication: Asthma
     Dosage: 2 DF, BID?TUDORZA GENUAIR
     Route: 055
  50. ZENHALE [Concomitant]
     Active Substance: FORMOTEROL FUMARATE\MOMETASONE FUROATE
     Indication: Asthma
     Dosage: 2 DF, QID
     Route: 055
     Dates: start: 201703
  51. INSULIN NOS [Concomitant]
     Active Substance: INSULIN NOS
     Indication: Product used for unknown indication
     Dosage: UNK (UP FROM 14 TO 24UNITS DAILY)
     Route: 065
  52. POTASSIUM [Concomitant]
     Active Substance: POTASSIUM
     Indication: Product used for unknown indication
     Dosage: UNK
     Route: 065
  53. LASIX [Concomitant]
     Active Substance: FUROSEMIDE
     Indication: Product used for unknown indication
     Dosage: 1 DF, QD
     Route: 048
  54. LASIX [Concomitant]
     Active Substance: FUROSEMIDE
  55. PIPERACILLIN AND TAZOBACTAM [Concomitant]
     Active Substance: PIPERACILLIN SODIUM\TAZOBACTAM SODIUM
     Indication: Product used for unknown indication
     Dosage: UNK
     Route: 065
     Dates: end: 20210215
  56. KEFLEX [Concomitant]
     Active Substance: CEPHALEXIN
     Indication: Product used for unknown indication

REACTIONS (89)
  - Pyrexia [Unknown]
  - Polymyalgia rheumatica [Not Recovered/Not Resolved]
  - Pain [Unknown]
  - Myopathy [Unknown]
  - Flank pain [Unknown]
  - Seizure [Unknown]
  - Dysarthria [Recovered/Resolved]
  - Nephrolithiasis [Unknown]
  - Pyelonephritis [Recovering/Resolving]
  - Paraesthesia [Recovered/Resolved]
  - Calculus urinary [Unknown]
  - Bronchiectasis [Recovering/Resolving]
  - Chills [Not Recovered/Not Resolved]
  - Body temperature increased [Unknown]
  - Atrial fibrillation [Unknown]
  - Lower respiratory tract infection [Recovering/Resolving]
  - Cardiac failure [Recovering/Resolving]
  - Peripheral swelling [Recovered/Resolved]
  - Cellulitis [Unknown]
  - Drug dependence [Unknown]
  - Pseudomonas infection [Unknown]
  - Haemoglobin decreased [Unknown]
  - Hypokinesia [Unknown]
  - Syncope [Recovered/Resolved]
  - Drug hypersensitivity [Unknown]
  - Skin lesion [Unknown]
  - Hypoacusis [Recovered/Resolved]
  - Movement disorder [Unknown]
  - Muscular weakness [Unknown]
  - Arthralgia [Not Recovered/Not Resolved]
  - Oedema [Recovered/Resolved]
  - Blister [Unknown]
  - Blood iron decreased [Unknown]
  - Wound secretion [Unknown]
  - Wound complication [Unknown]
  - Decreased appetite [Not Recovered/Not Resolved]
  - Sinus disorder [Unknown]
  - Nasal polyps [Unknown]
  - Rales [Unknown]
  - Feeling cold [Unknown]
  - Back pain [Unknown]
  - Burning sensation [Unknown]
  - Migraine [Unknown]
  - Bladder pain [Unknown]
  - Herpes zoster [Unknown]
  - Skin laceration [Not Recovered/Not Resolved]
  - Blood pressure increased [Unknown]
  - Ear pain [Recovering/Resolving]
  - Procedural pain [Recovering/Resolving]
  - Pneumonia [Recovering/Resolving]
  - Tunnel vision [Recovered/Resolved]
  - Heart rate increased [Unknown]
  - Ear congestion [Unknown]
  - Bronchopulmonary aspergillosis allergic [Unknown]
  - Influenza [Unknown]
  - Sinusitis [Unknown]
  - Urinary tract infection [Unknown]
  - Obstructive airways disorder [Not Recovered/Not Resolved]
  - Muscle spasms [Unknown]
  - Blood urine present [Unknown]
  - Sinus pain [Unknown]
  - Paranasal sinus discomfort [Unknown]
  - Haematuria [Unknown]
  - Malaise [Unknown]
  - Urinary tract discomfort [Not Recovered/Not Resolved]
  - Cough [Recovered/Resolved]
  - Dyspnoea [Recovered/Resolved]
  - Joint injury [Unknown]
  - Panic attack [Unknown]
  - Bronchitis [Unknown]
  - Fall [Unknown]
  - Abdominal pain [Not Recovered/Not Resolved]
  - Illness [Unknown]
  - Limb injury [Recovering/Resolving]
  - Depression [Unknown]
  - Abdominal distension [Not Recovered/Not Resolved]
  - Injection site pain [Recovered/Resolved]
  - Diarrhoea [Not Recovered/Not Resolved]
  - Pain in extremity [Unknown]
  - Heart rate irregular [Unknown]
  - Oedema peripheral [Unknown]
  - Hyperhidrosis [Not Recovered/Not Resolved]
  - Wrist fracture [Unknown]
  - Cystitis [Unknown]
  - Myalgia [Unknown]
  - Influenza like illness [Recovering/Resolving]
  - Oropharyngeal pain [Recovering/Resolving]
  - Product dose omission issue [Unknown]
  - Incorrect dose administered [Unknown]

NARRATIVE: CASE EVENT DATE: 20180105
